FAERS Safety Report 20739456 (Version 2)
Quarter: 2022Q2

REPORT INFORMATION
  Report Type: Spontaneous
  Country: US (occurrence: US)
  Receive Date: 20220422
  Receipt Date: 20220628
  Transmission Date: 20220721
  Serious: Yes (Hospitalization, Other)
  Sender: FDA-Public Use
  Company Number: US-Covis Pharma GmbH-2022COV01207

PATIENT
  Sex: Female
  Weight: 2.478 kg

DRUGS (1)
  1. MAKENA [Suspect]
     Active Substance: HYDROXYPROGESTERONE CAPROATE
     Indication: Foetal exposure during pregnancy
     Route: 064
     Dates: end: 20220405

REACTIONS (3)
  - Nonreassuring foetal heart rate pattern [Unknown]
  - Foetal heart rate acceleration abnormality [Unknown]
  - Premature baby [Unknown]
